FAERS Safety Report 17640882 (Version 1)
Quarter: 2020Q2

REPORT INFORMATION
  Report Type: Spontaneous
  Country: US (occurrence: US)
  Receive Date: 20200408
  Receipt Date: 20200408
  Transmission Date: 20200713
  Serious: Yes (Other)
  Sender: FDA-Public Use
  Company Number: US-ROCHE-2574271

PATIENT
  Sex: Male
  Weight: 81.72 kg

DRUGS (1)
  1. TECENTRIQ [Suspect]
     Active Substance: ATEZOLIZUMAB
     Indication: BLADDER CANCER
     Route: 042
     Dates: start: 201612

REACTIONS (7)
  - Sleep apnoea syndrome [Unknown]
  - Urinary cystectomy [Unknown]
  - Cough [Unknown]
  - Fatigue [Unknown]
  - Emphysema [Unknown]
  - Off label use [Unknown]
  - Chronic obstructive pulmonary disease [Unknown]

NARRATIVE: CASE EVENT DATE: 2017
